FAERS Safety Report 4365272-0 (Version None)
Quarter: 2004Q2

REPORT INFORMATION
  Report Type: 
  Country: None (occurrence: None)
  Receive Date: 20040521
  Receipt Date: 20040505
  Transmission Date: 20050107
  Serious: No
  Sender: FDA-Public Use
  Company Number: A02200400756

PATIENT
  Age: 53 Year
  Sex: Male

DRUGS (3)
  1. PLAVIX [Suspect]
     Indication: ARTERIOPATHIC DISEASE
     Dosage: 75 MG OD ORAL
     Route: 048
     Dates: start: 20020901
  2. ATORVASTATIN CALCIUM [Concomitant]
  3. VISKEN [Concomitant]

REACTIONS (1)
  - PEMPHIGUS [None]
